FAERS Safety Report 16483798 (Version 11)
Quarter: 2020Q1

REPORT INFORMATION
  Report Type: Spontaneous
  Country: US (occurrence: US)
  Receive Date: 20190627
  Receipt Date: 20200218
  Transmission Date: 20200409
  Serious: No
  Sender: FDA-Public Use
  Company Number: US-PFIZER INC-2019209774

PATIENT
  Age: 67 Year
  Sex: Female
  Weight: 59 kg

DRUGS (5)
  1. LYRICA [Suspect]
     Active Substance: PREGABALIN
     Indication: NEURALGIA
     Dosage: 250 MG, DAILY (50 MG, 1 IN THE MORNING AND 4 IN THE EVENING)
     Route: 048
  2. LYRICA [Suspect]
     Active Substance: PREGABALIN
     Indication: PAIN
     Dosage: UNK (ONE IN THE MORNING AND FOUR IN THE EVENING)
  3. LYRICA [Suspect]
     Active Substance: PREGABALIN
     Dosage: 50 MG, UNK
  4. LYRICA [Suspect]
     Active Substance: PREGABALIN
     Indication: PERINEURIAL CYST
     Dosage: 100 MG, DAILY
     Route: 048
  5. LYRICA [Suspect]
     Active Substance: PREGABALIN
     Dosage: 100 MG (2 50MG IN THE MORNING AND 2 50MG IN THE EVENING), 2X/DAY

REACTIONS (8)
  - Feeling drunk [Unknown]
  - Malaise [Unknown]
  - Asthenia [Unknown]
  - Fatigue [Unknown]
  - Product dispensing error [Unknown]
  - Weight increased [Not Recovered/Not Resolved]
  - Feeling abnormal [Unknown]
  - Product dose omission [Unknown]
